FAERS Safety Report 9662614 (Version 2)
Quarter: 2013Q4

REPORT INFORMATION
  Report Type: Spontaneous
  Country: US (occurrence: US)
  Receive Date: 20131031
  Receipt Date: 20131031
  Transmission Date: 20140711
  Serious: Yes (Other)
  Sender: FDA-Public Use
  Company Number: US-NAPPMUNDI-USA-2011-0065631

PATIENT
  Age: 55 Year
  Sex: Male

DRUGS (2)
  1. OXYCONTIN (NDA 22-272) [Suspect]
     Indication: PAIN
     Dosage: 80 MG, 2 TABETS EVERY 8 HOURS
  2. OXYCODONE HCL IMMEDIATE RELEASE (91-490) [Concomitant]
     Indication: BREAKTHROUGH PAIN

REACTIONS (7)
  - Drug dependence [Unknown]
  - Pain [Unknown]
  - Flatulence [Unknown]
  - Eructation [Unknown]
  - Malaise [Unknown]
  - Drug tolerance [Unknown]
  - Inadequate analgesia [Unknown]
